FAERS Safety Report 4872621-3 (Version None)
Quarter: 2006Q1

REPORT INFORMATION
  Report Type: 
  Country: None (occurrence: None)
  Receive Date: 20060105
  Receipt Date: 20021023
  Transmission Date: 20060701
  Serious: Yes (Hospitalization)
  Sender: FDA-Public Use
  Company Number: AU-ABBOTT-02P-008-0202800-03

PATIENT
  Sex: Male

DRUGS (5)
  1. FENOFIBRATE [Suspect]
     Indication: DYSLIPIDAEMIA
     Route: 048
     Dates: start: 19990721, end: 20000610
  2. FENOFIBRATE [Suspect]
     Dates: start: 20020801
  3. ASPIRIN [Concomitant]
     Indication: DRUG USE FOR UNKNOWN INDICATION
     Dates: start: 19970101
  4. METFORMIN HYDROCHLORIDE [Concomitant]
     Indication: DRUG USE FOR UNKNOWN INDICATION
     Dates: start: 19990601
  5. METFORMIN HYDROCHLORIDE [Concomitant]
     Dates: start: 20010701

REACTIONS (3)
  - ATRIAL FIBRILLATION [None]
  - HYPOGLYCAEMIA [None]
  - PALPITATIONS [None]
